FAERS Safety Report 9046260 (Version 2)
Quarter: 2013Q2

REPORT INFORMATION
  Report Type: Spontaneous
  Country: IE (occurrence: IE)
  Receive Date: 20130201
  Receipt Date: 20130401
  Transmission Date: 20140414
  Serious: Yes (Other)
  Sender: FDA-Public Use
  Company Number: IE-MERCK-1301IRL013039

PATIENT
  Sex: Female

DRUGS (1)
  1. CANCIDAS [Suspect]
     Dosage: UNKNOWN

REACTIONS (1)
  - Skin lesion [Unknown]
